FAERS Safety Report 8244630-8 (Version None)
Quarter: 2012Q1

REPORT INFORMATION
  Report Type: 
  Country: None (occurrence: None)
  Receive Date: 20120329
  Receipt Date: 20120214
  Transmission Date: 20120608
  Serious: No
  Sender: FDA-Public Use
  Company Number: US-MYLANLABS-2011S1023415

PATIENT
  Sex: Female

DRUGS (12)
  1. FENTANYL-100 [Suspect]
     Indication: OSTEOARTHRITIS
     Dosage: CHANGED Q48H
     Route: 062
  2. FENTANYL-100 [Suspect]
     Indication: PAIN
     Dosage: CHANGED Q48H
     Route: 062
  3. FENTANYL-100 [Suspect]
     Dosage: CHANGED Q48H
     Route: 062
  4. VICODIN [Concomitant]
     Indication: BREAKTHROUGH PAIN
     Route: 048
  5. ASPIRIN [Concomitant]
  6. VITAMIN D2 + CALCIUM /00188401/ [Concomitant]
     Route: 048
  7. LASIX [Concomitant]
     Route: 048
  8. METOPROLOL SUCCINATE [Concomitant]
     Route: 048
  9. CELEXA [Concomitant]
     Route: 048
  10. FENTANYL-100 [Suspect]
     Dosage: CHANGED Q48H
     Route: 062
  11. LISINOPRIL [Concomitant]
     Route: 048
  12. POTASSIUM [Concomitant]
     Route: 048

REACTIONS (3)
  - DRUG WITHDRAWAL SYNDROME [None]
  - PAIN [None]
  - DRUG INEFFECTIVE [None]
